FAERS Safety Report 18715280 (Version 1)
Quarter: 2021Q1

REPORT INFORMATION
  Report Type: Spontaneous
  Country: JP (occurrence: JP)
  Receive Date: 20210108
  Receipt Date: 20210108
  Transmission Date: 20210419
  Serious: Yes (Other)
  Sender: FDA-Public Use
  Company Number: JP-MICRO LABS LIMITED-ML2021-00018

PATIENT
  Age: 65 Year
  Sex: Male
  Weight: 63 kg

DRUGS (14)
  1. FAROPENEM [Concomitant]
     Active Substance: FAROPENEM
     Indication: MYCOBACTERIUM FORTUITUM INFECTION
  2. TACROLIMUS. [Concomitant]
     Active Substance: TACROLIMUS
     Indication: IMMUNOSUPPRESSION
  3. CLARITHROMYCIN. [Concomitant]
     Active Substance: CLARITHROMYCIN
     Indication: MYCOBACTERIUM FORTUITUM INFECTION
  4. PREDNISOLONE. [Concomitant]
     Active Substance: PREDNISOLONE
     Dosage: TAPERED
  5. CLARITHROMYCIN. [Concomitant]
     Active Substance: CLARITHROMYCIN
  6. PREDNISOLONE. [Concomitant]
     Active Substance: PREDNISOLONE
     Dosage: DOSE INCREASED
  7. PREDNISOLONE. [Concomitant]
     Active Substance: PREDNISOLONE
     Indication: IMMUNOSUPPRESSION
  8. SALAZOSULFAPYRIDINE [Concomitant]
     Active Substance: SULFASALAZINE
     Indication: RHEUMATOID ARTHRITIS
  9. LEVOFLOXACIN. [Suspect]
     Active Substance: LEVOFLOXACIN
     Indication: MYCOBACTERIUM FORTUITUM INFECTION
  10. TRIMETHOPRIM?SULFAMETHOXAZOLE [Concomitant]
     Active Substance: SULFAMETHOXAZOLE\TRIMETHOPRIM
     Indication: MYCOBACTERIUM FORTUITUM INFECTION
     Dosage: TRIMETHOPRIM 320 MG/DAY AND SULFAMETHOXAZOLE 1600 MG/DAY WERE ADDED AFTER DISCHARGE
  11. AMIKACIN. [Concomitant]
     Active Substance: AMIKACIN
     Indication: MYCOBACTERIUM FORTUITUM INFECTION
  12. IMIPENEM/CILASTIN [Concomitant]
     Indication: MYCOBACTERIUM FORTUITUM INFECTION
  13. TACROLIMUS. [Concomitant]
     Active Substance: TACROLIMUS
     Indication: RHEUMATOID ARTHRITIS
  14. SITAFLOXACIN [Concomitant]
     Active Substance: SITAFLOXACIN
     Indication: MYCOBACTERIUM FORTUITUM INFECTION

REACTIONS (1)
  - Pathogen resistance [Unknown]
